FAERS Safety Report 23142067 (Version 1)
Quarter: 2023Q4

REPORT INFORMATION
  Report Type: Spontaneous
  Country: US (occurrence: US)
  Receive Date: 20231103
  Receipt Date: 20231103
  Transmission Date: 20240109
  Serious: Yes (Hospitalization, Other)
  Sender: FDA-Public Use
  Company Number: US-ELI_LILLY_AND_COMPANY-US202310015501

PATIENT
  Age: 62 Year
  Sex: Female

DRUGS (19)
  1. OLANZAPINE [Suspect]
     Active Substance: OLANZAPINE
     Indication: Schizophrenia
     Dosage: AT BED TIME?DAILY DOSE: 5 MILLIGRAM
     Route: 048
  2. OLANZAPINE [Suspect]
     Active Substance: OLANZAPINE
     Indication: Schizophrenia
     Dosage: 5 MG, BID?DAILY DOSE: 10 MILLIGRAM
     Route: 030
  3. OLANZAPINE [Suspect]
     Active Substance: OLANZAPINE
     Indication: Schizophrenia
     Dosage: TOTAL OF 12.5 MG OF OLANZAPINE
     Route: 030
  4. OLANZAPINE [Suspect]
     Active Substance: OLANZAPINE
     Indication: Schizophrenia
     Route: 030
  5. OLANZAPINE [Suspect]
     Active Substance: OLANZAPINE
     Indication: Schizophrenia
     Dosage: ON DAYS 15 AND 16 ?DAILY DOSE: 10 MILLIGRAM
     Route: 048
  6. OLANZAPINE [Suspect]
     Active Substance: OLANZAPINE
     Indication: Schizophrenia
     Dosage: ON DAY 17 IN THE MORNING
     Route: 030
  7. OLANZAPINE [Suspect]
     Active Substance: OLANZAPINE
     Indication: Schizophrenia
     Dosage: 10 MG AT BED TIME?DAILY DOSE: 10 MILLIGRAM
     Route: 048
  8. HALOPERIDOL [Suspect]
     Active Substance: HALOPERIDOL
     Indication: Schizophrenia
     Dosage: 2 TO 4 MG
     Route: 030
  9. ESCITALOPRAM [Suspect]
     Active Substance: ESCITALOPRAM OXALATE
     Dosage: DAILY DOSE: 10 MILLIGRAM
  10. LORAZEPAM [Suspect]
     Active Substance: LORAZEPAM
     Dosage: TID?DAILY DOSE: 1.5 MILLIGRAM
  11. MIRTAZAPINE [Suspect]
     Active Substance: MIRTAZAPINE
     Dosage: 30 MG, AT BED TIME?DAILY DOSE: 30 MILLIGRAM
  12. TEMAZEPAM [Suspect]
     Active Substance: TEMAZEPAM
     Indication: Insomnia
     Dosage: 7.5 MG, AT BEDTIME AS NEEDED?DAILY DOSE: 7.5 MILLIGRAM
  13. LEVOTHYROXINE [Suspect]
     Active Substance: LEVOTHYROXINE
     Dosage: DAILY DOSE: 25 MICROGRAM
  14. METOPROLOL TARTRATE [Suspect]
     Active Substance: METOPROLOL TARTRATE
     Dosage: BID?DAILY DOSE: 50 MILLIGRAM
  15. POTASSIUM CHLORIDE [Suspect]
     Active Substance: POTASSIUM CHLORIDE
     Dosage: 10 MEQ, DAILY
  16. PANTOPRAZOLE [Suspect]
     Active Substance: PANTOPRAZOLE
     Dosage: DAILY DOSE: 40 MILLIGRAM
  17. LOSARTAN [Suspect]
     Active Substance: LOSARTAN
     Dosage: DAILY DOSE: 25 MILLIGRAM
  18. BENZTROPINE [Suspect]
     Active Substance: BENZTROPINE
     Dosage: BID?DAILY DOSE: 2 MILLIGRAM
  19. DOCUSATE [Suspect]
     Active Substance: DOCUSATE

REACTIONS (12)
  - Dysphagia [Recovered/Resolved]
  - Hypokalaemia [Unknown]
  - Thrombocytopenia [Unknown]
  - Extrapyramidal disorder [Recovering/Resolving]
  - Oesophageal obstruction [Recovered/Resolved]
  - Hypophagia [Recovered/Resolved]
  - Dehydration [Unknown]
  - Weight decreased [Unknown]
  - Agitation [Unknown]
  - Hallucinations, mixed [Unknown]
  - Tachycardia [Unknown]
  - Drug ineffective [Unknown]
